FAERS Safety Report 8556851-5 (Version None)
Quarter: 2012Q3

REPORT INFORMATION
  Report Type: 
  Country: None (occurrence: None)
  Receive Date: 20120801
  Receipt Date: 20120724
  Transmission Date: 20120928
  Serious: Yes (Hospitalization)
  Sender: FDA-Public Use
  Company Number: JP-VERTEX PHARMACEUTICALS INC.-AE-2012-007789

PATIENT
  Age: 56 Year
  Sex: Female

DRUGS (15)
  1. TELAVIC (TELAPREVIR) [Suspect]
     Indication: HEPATITIS C
     Route: 048
     Dates: start: 20120308, end: 20120517
  2. REBETOL [Concomitant]
     Route: 048
     Dates: start: 20120308, end: 20120412
  3. LANSOPRAZOLE [Concomitant]
     Route: 048
     Dates: start: 20120312
  4. ANTEBATE: OINTMENT [Concomitant]
     Route: 061
     Dates: start: 20120511
  5. CLARITIN [Concomitant]
     Route: 048
     Dates: start: 20120502, end: 20120514
  6. REBETOL [Concomitant]
     Route: 048
     Dates: start: 20120412, end: 20120419
  7. CELESTAMINE TAB [Concomitant]
     Route: 048
     Dates: start: 20120502
  8. PREDNISOLONE [Concomitant]
     Route: 048
     Dates: start: 20120518
  9. PEG-INTRON [Concomitant]
     Route: 058
     Dates: start: 20120308, end: 20120517
  10. LIDOMEX [Concomitant]
     Route: 061
     Dates: start: 20120515
  11. NERISONA [Concomitant]
     Route: 061
     Dates: start: 20120515
  12. PEG-INTRON [Concomitant]
     Route: 058
     Dates: start: 20120525
  13. REBETOL [Concomitant]
     Route: 048
     Dates: start: 20120419
  14. OLOPATADINE HCL [Concomitant]
     Route: 048
     Dates: start: 20120515
  15. CLARITIN REDITABS [Concomitant]
     Route: 048
     Dates: start: 20120308

REACTIONS (1)
  - RASH PAPULAR [None]
